FAERS Safety Report 6921458-X (Version None)
Quarter: 2010Q3

REPORT INFORMATION
  Report Type: 
  Country: None (occurrence: None)
  Receive Date: 20100812
  Receipt Date: 20081118
  Transmission Date: 20110219
  Serious: No
  Sender: FDA-Public Use
  Company Number: A0757199A

PATIENT
  Age: 86 Year
  Sex: Female

DRUGS (1)
  1. TAGAMET HB 200 [Suspect]
     Route: 048

REACTIONS (2)
  - DYSGEUSIA [None]
  - NAUSEA [None]
